FAERS Safety Report 26203634 (Version 1)
Quarter: 2025Q4

REPORT INFORMATION
  Report Type: Spontaneous
  Country: EU (occurrence: EU)
  Receive Date: 20251226
  Receipt Date: 20251226
  Transmission Date: 20260118
  Serious: Yes (Hospitalization)
  Sender: UNITED THERAPEUTICS
  Company Number: EU-UNITED THERAPEUTICS-UNT-2025-043359

PATIENT
  Sex: Male

DRUGS (2)
  1. REMODULIN [Suspect]
     Active Substance: TREPROSTINIL
     Indication: Product used for unknown indication
     Dosage: 0.039 ?G/KG [20 ML VIAL], CONTINUING
     Route: 041
  2. REMODULIN [Suspect]
     Active Substance: TREPROSTINIL
     Dosage: UNK, CONTINUING
     Route: 041

REACTIONS (3)
  - Catheter site pain [Unknown]
  - Catheter site erythema [Unknown]
  - Device dislocation [Recovered/Resolved]
